FAERS Safety Report 4960342-8 (Version None)
Quarter: 2006Q2

REPORT INFORMATION
  Report Type: 
  Country: None (occurrence: None)
  Receive Date: 20060403
  Receipt Date: 20060322
  Transmission Date: 20061013
  Serious: Yes (Other)
  Sender: FDA-Public Use
  Company Number: PHBS2006CA04560

PATIENT
  Age: 1 Year
  Sex: Female

DRUGS (8)
  1. MINOXIDIL [Suspect]
  2. HYDROCHLOROTHIAZIDE [Suspect]
     Indication: HYPERTENSION
  3. AMLODIPINE [Suspect]
     Dosage: 0.5 MG/KG/DAY
  4. SPIRONOLACTONE [Suspect]
  5. ENALAPRIL MALEATE [Suspect]
  6. METOPROLOL [Suspect]
     Indication: HYPERTENSION
     Dosage: 5 MG/KG/DAY
  7. METOPROLOL [Suspect]
     Dosage: 6 MG/KG/DAY
  8. METOPROLOL [Suspect]
     Dosage: 1.3 MG/KG/DAY

REACTIONS (12)
  - AORTIC ANEURYSM REPAIR [None]
  - ARTERIAL BYPASS OPERATION [None]
  - BLOOD PRESSURE INADEQUATELY CONTROLLED [None]
  - CONDITION AGGRAVATED [None]
  - DRUG INEFFECTIVE [None]
  - DYSPLASIA [None]
  - HYPERTRICHOSIS [None]
  - RENAL ARTERY STENOSIS [None]
  - RENAL FAILURE ACUTE [None]
  - RENAL TRANSPLANT [None]
  - VASCULAR PSEUDOANEURYSM [None]
  - VENTRICULAR HYPERTROPHY [None]
